FAERS Safety Report 9422394 (Version 2)
Quarter: 2013Q3

REPORT INFORMATION
  Report Type: Spontaneous
  Country: DE (occurrence: DE)
  Receive Date: 20130722
  Receipt Date: 20130821
  Transmission Date: 20140515
  Serious: Yes (Other)
  Sender: FDA-Public Use
  Company Number: 2013036921

PATIENT
  Age: 12 Year
  Sex: Female

DRUGS (3)
  1. HIZENTRA (IMMUNOGLOBULIN HUMAN NORMAL) [Suspect]
     Indication: IMMUNODEFICIENCY COMMON VARIABLE
     Route: 058
     Dates: start: 201208
  2. COTRIM (BACTRIM/00086101/) [Concomitant]
  3. ACICLOVIR (ACICLOVIR) [Concomitant]

REACTIONS (5)
  - Headache [None]
  - Disturbance in attention [None]
  - Nausea [None]
  - Infection [None]
  - Condition aggravated [None]
